FAERS Safety Report 8757479 (Version 1)
Quarter: 2012Q4

REPORT INFORMATION
  Report Type: 
  Country: US (occurrence: US)
  Receive Date: 20120828
  Receipt Date: 20120828
  Transmission Date: 20130627
  Serious: Yes (Hospitalization)
  Sender: FDA-Public Use
  Company Number: US-BAYER-2012-087339

PATIENT
  Age: 38 Year
  Sex: Female
  Weight: 110 kg

DRUGS (7)
  1. YASMIN [Suspect]
  2. OCELLA [Suspect]
  3. BACTRIM DS [Concomitant]
     Dosage: 800-160mg, BID
     Dates: start: 20110714
  4. VENLAFAXINE HYDROCHLORIDE [Concomitant]
     Dosage: 75 mg, daily
  5. NAPROSYN [Concomitant]
     Dosage: 600 mg, BID
     Dates: start: 20111003
  6. VITAMIN D3 [Concomitant]
     Dosage: 50,000 units monthly
     Dates: start: 20111003
  7. EFFEXOR [Concomitant]
     Dosage: UNK
     Dates: start: 20111003

REACTIONS (1)
  - Pulmonary embolism [None]
